FAERS Safety Report 7789126-2 (Version None)
Quarter: 2011Q3

REPORT INFORMATION
  Report Type: 
  Country: None (occurrence: None)
  Receive Date: 20110930
  Receipt Date: 20110923
  Transmission Date: 20111222
  Serious: Yes (Other)
  Sender: FDA-Public Use
  Company Number: GB-JNJFOC-20110910477

PATIENT
  Age: 4 Decade
  Sex: Male

DRUGS (3)
  1. PALIPERIDONE [Suspect]
     Route: 030
  2. PALIPERIDONE [Suspect]
     Indication: SCHIZOAFFECTIVE DISORDER
     Route: 030
  3. VENLAFAXINE HYDROCHLORIDE [Concomitant]
     Route: 065

REACTIONS (2)
  - ELEVATED MOOD [None]
  - MANIA [None]
